APPROVED DRUG PRODUCT: PERPHENAZINE
Active Ingredient: PERPHENAZINE
Strength: 16MG/5ML
Dosage Form/Route: CONCENTRATE;ORAL
Application: A040360 | Product #001
Applicant: PHARMACEUTICAL ASSOC INC
Approved: May 25, 2001 | RLD: No | RS: No | Type: DISCN